FAERS Safety Report 8977680 (Version 3)
Quarter: 2013Q1

REPORT INFORMATION
  Report Type: Spontaneous
  Country: DE (occurrence: DE)
  Receive Date: 20121220
  Receipt Date: 20130222
  Transmission Date: 20140127
  Serious: Yes (Death)
  Sender: FDA-Public Use
  Company Number: DE-PFIZER INC-2012266036

PATIENT
  Age: 61 Year
  Sex: Male
  Weight: 73 kg

DRUGS (3)
  1. SUTENT [Suspect]
     Indication: METASTATIC RENAL CELL CARCINOMA
     Dosage: 7 CYCLES
  2. XARELTO [Suspect]
     Indication: ANTICOAGULANT THERAPY
     Dosage: 10 MG, UNK
     Route: 048
     Dates: start: 20121006, end: 20121010
  3. XARELTO [Suspect]
     Indication: ATRIAL FIBRILLATION
     Dosage: 15 MG, UNK
     Route: 048
     Dates: start: 20121011

REACTIONS (6)
  - Haemorrhagic disorder [Fatal]
  - Coma hepatic [Fatal]
  - Multi-organ failure [Fatal]
  - Renal failure [Fatal]
  - Hepatic failure [Fatal]
  - Sepsis [Fatal]
